FAERS Safety Report 4506926-2 (Version None)
Quarter: 2004Q4

REPORT INFORMATION
  Report Type: 
  Country: None (occurrence: None)
  Receive Date: 20041025
  Receipt Date: 20040726
  Transmission Date: 20050328
  Serious: Yes (Hospitalization)
  Sender: FDA-Public Use
  Company Number: US-JNJFOC-20040707117

PATIENT
  Age: 59 Year
  Sex: Male
  Weight: 103.4201 kg

DRUGS (16)
  1. REMICADE [Suspect]
     Indication: RHEUMATOID ARTHRITIS
     Dosage: INTRAVENOUS
     Route: 042
     Dates: start: 20011019, end: 20030901
  2. ALLEGRA [Concomitant]
  3. COZAAR [Concomitant]
  4. FOLIC ACID [Concomitant]
  5. GLUCOPHAGE [Concomitant]
  6. IMITREX [Concomitant]
  7. NORFLEX [Concomitant]
  8. QUININE (QUININE) [Concomitant]
  9. PLAQUENIL [Concomitant]
  10. VICODIN [Concomitant]
  11. SONATA [Concomitant]
  12. ACTOS [Concomitant]
  13. METHOTREXATE [Concomitant]
  14. NEXIUM [Concomitant]
  15. BEXTRA [Concomitant]
  16. LIPITOR [Concomitant]

REACTIONS (1)
  - HEADACHE [None]
